FAERS Safety Report 5748398-6 (Version None)
Quarter: 2008Q2

REPORT INFORMATION
  Report Type: 
  Country: None (occurrence: None)
  Receive Date: 20080520
  Receipt Date: 20080512
  Transmission Date: 20081010
  Serious: Yes (Other)
  Sender: FDA-Public Use
  Company Number: CIP08000824

PATIENT
  Age: 73 Year
  Sex: Female

DRUGS (3)
  1. ACTONEL [Suspect]
     Dosage: 35 MG ONCE WEEKLY, ORAL
     Route: 048
  2. OTHER ANTIHYPERTENSIVES [Concomitant]
  3. CHOLESTEROL - AND TRIGLYCERIDE REDUCERS [Concomitant]

REACTIONS (1)
  - NEPHROLITHIASIS [None]
